FAERS Safety Report 8515685 (Version 2)
Quarter: 2013Q1

REPORT INFORMATION
  Report Type: Spontaneous
  Country: US (occurrence: US)
  Receive Date: 20120417
  Receipt Date: 20130319
  Transmission Date: 20140127
  Serious: Yes (Other)
  Sender: FDA-Public Use
  Company Number: US-ROCHE-784285

PATIENT
  Age: 15 Year
  Sex: Male
  Weight: 72.64 kg

DRUGS (2)
  1. ACCUTANE [Suspect]
     Indication: ACNE
     Route: 048
     Dates: start: 19990721, end: 20000301
  2. ACCUTANE [Suspect]
     Indication: ACNE

REACTIONS (7)
  - Inflammatory bowel disease [Unknown]
  - Anxiety [Unknown]
  - Colitis ulcerative [Unknown]
  - Depression [Unknown]
  - Epistaxis [Recovered/Resolved]
  - Dry skin [Unknown]
  - Blood triglycerides increased [Unknown]
